FAERS Safety Report 9696944 (Version 2)
Quarter: 2013Q4

REPORT INFORMATION
  Report Type: Spontaneous
  Country: US (occurrence: US)
  Receive Date: 20131119
  Receipt Date: 20131119
  Transmission Date: 20140711
  Serious: Yes (Hospitalization, Other)
  Sender: FDA-Public Use
  Company Number: US-009507513-1201USA00766

PATIENT
  Sex: Female
  Weight: 51.7 kg

DRUGS (6)
  1. FOSAMAX [Suspect]
     Indication: OSTEOPENIA
     Dosage: UNK
     Route: 048
     Dates: start: 200809, end: 2009
  2. FOSAMAX [Suspect]
     Indication: OSTEOPOROSIS
  3. ALENDRONATE SODIUM [Suspect]
     Dosage: 70 MG, QW
     Dates: start: 20080907
  4. BONIVA [Suspect]
     Indication: OSTEOPENIA
     Dosage: 150 MG, UNK
     Route: 048
     Dates: end: 200808
  5. BONIVA [Suspect]
     Indication: OSTEOPOROSIS
  6. OMEPRAZOLE [Concomitant]
     Dosage: UNK
     Dates: start: 200609

REACTIONS (28)
  - Femur fracture [Recovered/Resolved]
  - Intramedullary rod insertion [Unknown]
  - Lung operation [Unknown]
  - Thoracotomy [Unknown]
  - Gait disturbance [Not Recovered/Not Resolved]
  - Pneumonia [Unknown]
  - Pneumothorax [Unknown]
  - Cardiac murmur [Unknown]
  - Chest X-ray abnormal [Unknown]
  - Hypotension [Recovered/Resolved]
  - Anaemia [Unknown]
  - Hyperlipidaemia [Unknown]
  - Iron deficiency [Unknown]
  - Empyema [Unknown]
  - Psoriasis [Unknown]
  - Venous insufficiency [Unknown]
  - Onychomycosis [Unknown]
  - Osteoarthritis [Unknown]
  - Hand deformity [Unknown]
  - Appendicectomy [Unknown]
  - Hysterectomy [Unknown]
  - Limb operation [Unknown]
  - Abscess drainage [Unknown]
  - Fall [Unknown]
  - Inflammation [Unknown]
  - Surgery [Unknown]
  - Hypophosphataemia [Unknown]
  - Pain in extremity [Unknown]
